FAERS Safety Report 4673162-9 (Version None)
Quarter: 2005Q2

REPORT INFORMATION
  Report Type: 
  Country: None (occurrence: None)
  Receive Date: 20050524
  Receipt Date: 20050524
  Transmission Date: 20051028
  Serious: No
  Sender: FDA-Public Use
  Company Number: None

PATIENT
  Sex: Male
  Weight: 99.4511 kg

DRUGS (2)
  1. ELOXATIN [Suspect]
     Indication: COLORECTAL CANCER METASTATIC
     Dosage: 213MG  Q 2 WEEKS  INTRAVENOUS
     Route: 042
     Dates: start: 20050523, end: 20050523
  2. ELOXATIN [Suspect]
     Dates: start: 20050418, end: 20050418

REACTIONS (5)
  - CHEST PAIN [None]
  - FLUSHING [None]
  - INFUSION RELATED REACTION [None]
  - MALAISE [None]
  - PARAESTHESIA [None]
